FAERS Safety Report 8986684 (Version 2)
Quarter: 2013Q2

REPORT INFORMATION
  Report Type: Spontaneous
  Country: US (occurrence: US)
  Receive Date: 20121227
  Receipt Date: 20130524
  Transmission Date: 20140414
  Serious: No
  Sender: FDA-Public Use
  Company Number: US-009507513-1212USA006393

PATIENT
  Age: 59 Year
  Sex: Male
  Weight: 68.27 kg

DRUGS (8)
  1. SAPHRIS [Suspect]
     Indication: BIPOLAR DISORDER
     Dosage: 10 MG PER DAY
     Route: 060
     Dates: start: 20120829, end: 20121105
  2. SAPHRIS [Suspect]
     Dosage: UNK
  3. SAPHRIS [Suspect]
     Indication: BIPOLAR DISORDER
     Dosage: 5 MG PER DAY
     Route: 060
  4. AMBIEN [Concomitant]
     Indication: INSOMNIA
     Dosage: 10 MG, QW
     Route: 048
     Dates: start: 20121026
  5. ZESTRIL [Concomitant]
  6. ZOCOR [Concomitant]
     Route: 048
  7. FENTANYL [Concomitant]
  8. COREG [Concomitant]

REACTIONS (3)
  - Tooth discolouration [Recovered/Resolved]
  - Inappropriate schedule of drug administration [Unknown]
  - Underdose [Unknown]
